FAERS Safety Report 8714682 (Version 2)
Quarter: 2012Q4

REPORT INFORMATION
  Report Type: 
  Country: AU (occurrence: AU)
  Receive Date: 20120809
  Receipt Date: 20120904
  Transmission Date: 20130627
  Serious: Yes (Hospitalization)
  Sender: FDA-Public Use
  Company Number: PHHY2012AU068098

PATIENT
  Age: 37 Year
  Sex: Female

DRUGS (4)
  1. CLOZARIL [Suspect]
     Indication: SCHIZOPHRENIA, PARANOID TYPE
     Dosage: 350 mg, UNK
     Route: 048
     Dates: start: 19980505, end: 200908
  2. CLOZARIL [Suspect]
     Dosage: 400 mg, UNK
     Dates: start: 20120716
  3. CLOPINE [Suspect]
     Indication: SCHIZOPHRENIA, PARANOID TYPE
     Dosage: 350 mg, UNK
     Route: 048
     Dates: end: 201207
  4. DOCUSATE [Concomitant]
     Dosage: 50 mg, BID
     Route: 048

REACTIONS (1)
  - Mental impairment [Recovering/Resolving]
